FAERS Safety Report 6521648-4 (Version None)
Quarter: 2009Q4

REPORT INFORMATION
  Report Type: 
  Country: None (occurrence: None)
  Receive Date: 20091230
  Receipt Date: 20091218
  Transmission Date: 20100525
  Serious: Yes (Other)
  Sender: FDA-Public Use
  Company Number: PHHY2009CA56713

PATIENT
  Sex: Male

DRUGS (8)
  1. RASILEZ [Suspect]
     Indication: HYPERTENSION
     Dates: start: 20091028
  2. ASPIRIN [Concomitant]
  3. ADALAT [Concomitant]
  4. MICARDIS HCT [Concomitant]
  5. CRESTOR [Concomitant]
  6. INSULIN [Concomitant]
  7. CIALIS [Concomitant]
  8. SERAX [Concomitant]

REACTIONS (2)
  - GYNAECOMASTIA [None]
  - NIPPLE PAIN [None]
